FAERS Safety Report 10172758 (Version 1)
Quarter: 2014Q2

REPORT INFORMATION
  Report Type: Spontaneous
  Country: US (occurrence: None)
  Receive Date: 20140416
  Receipt Date: 20140416
  Transmission Date: 20141212
  Serious: No
  Sender: FDA-Public Use
  Company Number: 163-POMAL-13123460

PATIENT
  Age: 64 Year
  Sex: Male
  Weight: 120.2 kg

DRUGS (10)
  1. POMALYST [Suspect]
     Indication: PLASMA CELL MYELOMA
     Route: 048
     Dates: start: 20131126
  2. ACCUPRIL (QUINAPRIL HYDROCHLORIDE) (TABLETS) [Concomitant]
  3. SIMVASTATIN (SIMVASTATIN) (TABLETS) [Concomitant]
  4. METFORMIN HCL (METFORMIN HYDROCHLORIDE) (UNKNOWN) [Concomitant]
  5. FENOFIBRATE (FENOFIBRATE) (UNKNOWN) [Concomitant]
  6. GLIPIZIDE (GLIPIZIDE) (TABLETS) [Concomitant]
  7. CELEXA (CITALOPRAM HYDROBROMIDE) (TABLETS) [Concomitant]
  8. ASPIRINE (ACETYLSALICYLIC ACID) (ENTERIC-COATED TABLET) [Concomitant]
  9. CENTRUM (CENTRUM) (TABLETS) [Concomitant]
  10. LEVOTHYROXIN (LEVOTHYROXINE SODIUM) (UNKNOWN) [Concomitant]

REACTIONS (3)
  - Fall [None]
  - Back pain [None]
  - Nausea [None]
